FAERS Safety Report 16195898 (Version 1)
Quarter: 2019Q2

REPORT INFORMATION
  Report Type: Spontaneous
  Country: DE (occurrence: DE)
  Receive Date: 20190415
  Receipt Date: 20190415
  Transmission Date: 20190711
  Serious: Yes (Other)
  Sender: FDA-Public Use
  Company Number: DE-TEVA-2019-DE-1037072

PATIENT
  Age: 54 Year
  Sex: Female
  Weight: 72 kg

DRUGS (1)
  1. MOXIFLOXACIN. [Suspect]
     Active Substance: MOXIFLOXACIN
     Dosage: 400 MG INFUSION
     Dates: start: 20190319, end: 20190320

REACTIONS (6)
  - Hypertension [Recovering/Resolving]
  - Restlessness [Recovering/Resolving]
  - Nervousness [Recovering/Resolving]
  - Extrasystoles [Recovering/Resolving]
  - Liver function test increased [Recovering/Resolving]
  - Tinnitus [Recovering/Resolving]

NARRATIVE: CASE EVENT DATE: 201903
